FAERS Safety Report 5901764-8 (Version None)
Quarter: 2008Q3

REPORT INFORMATION
  Report Type: 
  Country: None (occurrence: None)
  Receive Date: 20080929
  Receipt Date: 20080926
  Transmission Date: 20090109
  Serious: Yes (Other)
  Sender: FDA-Public Use
  Company Number: DE-BRISTOL-MYERS SQUIBB COMPANY-14302525

PATIENT
  Age: 47 Year
  Sex: Male
  Weight: 80 kg

DRUGS (2)
  1. STOCRIN [Suspect]
     Indication: HIV INFECTION
     Dosage: FIRST-LINE THERAPY
     Route: 048
     Dates: start: 20080701, end: 20080718
  2. TRUVADA [Concomitant]
     Route: 048
     Dates: start: 20080315

REACTIONS (9)
  - DISTURBANCE IN ATTENTION [None]
  - FATIGUE [None]
  - HEADACHE [None]
  - HYPOTENSION [None]
  - MALAISE [None]
  - NAUSEA [None]
  - NIGHTMARE [None]
  - VIRAL LOAD INCREASED [None]
  - WEIGHT DECREASED [None]
